FAERS Safety Report 6546359-0 (Version None)
Quarter: 2010Q1

REPORT INFORMATION
  Report Type: 
  Country: None (occurrence: None)
  Receive Date: 20100115
  Receipt Date: 20091229
  Transmission Date: 20100710
  Serious: No
  Sender: FDA-Public Use
  Company Number: 2009-00924

PATIENT
  Age: 52 Year
  Sex: Female
  Weight: 106.5953 kg

DRUGS (2)
  1. COLD REMEDY ZAVORS [Suspect]
     Dosage: QID - 4 DAYS
     Dates: start: 20091223, end: 20091227
  2. ZOLOFT [Concomitant]

REACTIONS (1)
  - AGEUSIA [None]
